FAERS Safety Report 7301996-0 (Version None)
Quarter: 2011Q1

REPORT INFORMATION
  Report Type: 
  Country: None (occurrence: None)
  Receive Date: 20110218
  Receipt Date: 20110210
  Transmission Date: 20110831
  Serious: Yes (Other)
  Sender: FDA-Public Use
  Company Number: US-ROCHE-759481

PATIENT
  Sex: Male

DRUGS (7)
  1. LISINOPRIL [Concomitant]
  2. PEGINTERFERON ALFA-2A [Suspect]
     Indication: HEPATITIS C
     Dosage: FORM: PRE-FILLED SYRINGE
     Route: 065
     Dates: start: 20110107
  3. OMEPRAZOLE [Concomitant]
  4. BRIMONIDINE [Concomitant]
     Dosage: DRUG REPORTED AS BRIMONIDINE TARTRATE EYE DROPS
  5. TYLENOL [Concomitant]
  6. RIBAVIRIN [Suspect]
     Indication: HEPATITIS C
     Dosage: IN DIVIDED DOSES
     Route: 065
     Dates: start: 20110107
  7. ALBUTEROL [Concomitant]

REACTIONS (2)
  - CORONARY ARTERY OCCLUSION [None]
  - BLOOD URINE PRESENT [None]
